FAERS Safety Report 7248451-4 (Version None)
Quarter: 2011Q1

REPORT INFORMATION
  Report Type: 
  Country: None (occurrence: None)
  Receive Date: 20110127
  Receipt Date: 20110117
  Transmission Date: 20110831
  Serious: Yes (Death)
  Sender: FDA-Public Use
  Company Number: FR-GENENTECH-312849

PATIENT
  Sex: Female
  Weight: 88 kg

DRUGS (4)
  1. RITUXIMAB [Suspect]
     Indication: AUTOIMMUNE THROMBOCYTOPENIA
     Dosage: 375 MG/M2, UNK
     Route: 042
     Dates: start: 20100529
  2. SOLUPRED [Concomitant]
     Indication: PRODUCT USED FOR UNKNOWN INDICATION
     Dosage: UNK
     Dates: start: 20100701, end: 20100907
  3. DEPAKENE [Concomitant]
     Indication: EPILEPSY
     Dosage: UNK
     Dates: start: 20100525, end: 20101003
  4. NEXIUM [Concomitant]
     Indication: STRESS ULCER
     Dosage: UNK
     Dates: start: 20100525, end: 20101003

REACTIONS (4)
  - SEPSIS [None]
  - SUDDEN DEATH [None]
  - PNEUMONIA ASPIRATION [None]
  - SEPTIC SHOCK [None]
